FAERS Safety Report 12088580 (Version 2)
Quarter: 2016Q1

REPORT INFORMATION
  Report Type: Report from Study
  Country: US (occurrence: US)
  Receive Date: 20160218
  Receipt Date: 20160316
  Transmission Date: 20160526
  Serious: No
  Sender: FDA-Public Use
  Company Number: PHEH2016US003941

PATIENT
  Sex: Female

DRUGS (2)
  1. FEMARA [Suspect]
     Active Substance: LETROZOLE
     Indication: PRODUCT USED FOR UNKNOWN INDICATION
     Route: 065
  2. ARIMIDEX [Suspect]
     Active Substance: ANASTROZOLE
     Indication: PRODUCT USED FOR UNKNOWN INDICATION
     Route: 065

REACTIONS (14)
  - Weight fluctuation [Unknown]
  - Anxiety [Unknown]
  - Pain [Unknown]
  - Incontinence [Unknown]
  - Fatigue [Unknown]
  - Libido disorder [Unknown]
  - Asthenia [Unknown]
  - Myalgia [Unknown]
  - Depression [Unknown]
  - Diarrhoea [Unknown]
  - Hot flush [Unknown]
  - Bone pain [Unknown]
  - Dry mouth [Unknown]
  - Arthralgia [Unknown]
